FAERS Safety Report 11112599 (Version 5)
Quarter: 2015Q3

REPORT INFORMATION
  Report Type: Report from Study
  Country: US (occurrence: US)
  Receive Date: 20150514
  Receipt Date: 20150716
  Transmission Date: 20151125
  Serious: Yes (Hospitalization, Other)
  Sender: FDA-Public Use
  Company Number: US-BIOGENIDEC-2015BI062028

PATIENT
  Sex: Female

DRUGS (1)
  1. TYSABRI [Suspect]
     Active Substance: NATALIZUMAB
     Indication: MULTIPLE SCLEROSIS
     Route: 042
     Dates: start: 20090824, end: 20140725

REACTIONS (6)
  - Foot deformity [Not Recovered/Not Resolved]
  - Cerebrovascular accident [Recovered/Resolved]
  - Urinary retention [Recovered/Resolved]
  - Paraesthesia [Not Recovered/Not Resolved]
  - Rectal tube insertion [Not Recovered/Not Resolved]
  - General physical health deterioration [Not Recovered/Not Resolved]
